FAERS Safety Report 15953749 (Version 3)
Quarter: 2019Q1

REPORT INFORMATION
  Report Type: Spontaneous
  Country: JP (occurrence: JP)
  Receive Date: 20190212
  Receipt Date: 20190214
  Transmission Date: 20190417
  Serious: Yes (Death, Other)
  Sender: FDA-Public Use
  Company Number: JP-009507513-1902JPN004234

PATIENT
  Age: 89 Year
  Sex: Male

DRUGS (1)
  1. FIDAXOMICIN [Suspect]
     Active Substance: FIDAXOMICIN
     Indication: ENTERITIS INFECTIOUS
     Dosage: 400 MG/DAY, UNKNOWN FREQ.
     Route: 050
     Dates: start: 20190131

REACTIONS (2)
  - Melaena [Fatal]
  - Off label use [Unknown]

NARRATIVE: CASE EVENT DATE: 20190204
